FAERS Safety Report 16424533 (Version 3)
Quarter: 2019Q3

REPORT INFORMATION
  Report Type: Spontaneous
  Country: AU (occurrence: AU)
  Receive Date: 20190613
  Receipt Date: 20190904
  Transmission Date: 20191004
  Serious: Yes (Other)
  Sender: FDA-Public Use
  Company Number: AU-AMGEN-AUSSP2019091112

PATIENT
  Age: 95 Year
  Sex: Female

DRUGS (4)
  1. PROLIA [Suspect]
     Active Substance: DENOSUMAB
     Indication: BONE DENSITY ABNORMAL
     Dosage: UNK UNK, Q6MO
     Route: 065
     Dates: start: 20180517
  2. PROLIA [Suspect]
     Active Substance: DENOSUMAB
     Dosage: UNK
     Route: 065
     Dates: start: 20190527
  3. VITAMIN D [ERGOCALCIFEROL] [Concomitant]
     Active Substance: ERGOCALCIFEROL
     Dosage: UNK
  4. PROLIA [Suspect]
     Active Substance: DENOSUMAB
     Indication: OSTEOPOROSIS
     Dosage: UNK
     Route: 065
     Dates: start: 20190121

REACTIONS (7)
  - Spinal stenosis [Unknown]
  - Myelopathy [Unknown]
  - Spinal cord compression [Unknown]
  - Spinal fracture [Unknown]
  - Back pain [Unknown]
  - Hypoaesthesia [Unknown]
  - Off label use [Unknown]

NARRATIVE: CASE EVENT DATE: 201807
